FAERS Safety Report 18636214 (Version 1)
Quarter: 2020Q4

REPORT INFORMATION
  Report Type: Report from Study
  Country: US (occurrence: US)
  Receive Date: 20201218
  Receipt Date: 20201218
  Transmission Date: 20210114
  Serious: Yes (Hospitalization, Other)
  Sender: FDA-Public Use
  Company Number: US-REGENERON PHARMACEUTICALS, INC.-2020-36301

PATIENT

DRUGS (2)
  1. EYLEA [Suspect]
     Active Substance: AFLIBERCEPT
     Dosage: BOTH EYES, LAST DOSE
     Route: 031
     Dates: start: 2019, end: 2019
  2. EYLEA [Suspect]
     Active Substance: AFLIBERCEPT
     Indication: DIABETIC RETINOPATHY
     Dosage: BOTH EYES
     Route: 031
     Dates: start: 2018

REACTIONS (9)
  - Hospitalisation [Unknown]
  - Myocardial infarction [Unknown]
  - Visual impairment [Unknown]
  - Vision blurred [Unknown]
  - Drug ineffective [Unknown]
  - Product dose omission issue [Unknown]
  - Localised infection [Unknown]
  - Retinal oedema [Unknown]
  - Visual acuity reduced [Unknown]

NARRATIVE: CASE EVENT DATE: 201912
